FAERS Safety Report 7381328-2 (Version None)
Quarter: 2011Q1

REPORT INFORMATION
  Report Type: 
  Country: None (occurrence: None)
  Receive Date: 20110323
  Receipt Date: 20110323
  Transmission Date: 20110831
  Serious: No
  Sender: FDA-Public Use
  Company Number: None

PATIENT
  Sex: Female
  Weight: 61.4 kg

DRUGS (8)
  1. ZEGRID - OMEPRAZOLE + SODICUM BICARBONATE [Suspect]
     Indication: BARRETT'S OESOPHAGUS
     Dates: start: 20081001
  2. ZEGRID - OMEPRAZOLE + SODICUM BICARBONATE [Suspect]
     Indication: GASTROOESOPHAGEAL REFLUX DISEASE
     Dates: start: 20081001
  3. NEXIUM [Suspect]
     Indication: BARRETT'S OESOPHAGUS
     Dosage: 1 BID PO ORAL
     Route: 048
     Dates: start: 20081001
  4. NEXIUM [Suspect]
     Indication: GASTROOESOPHAGEAL REFLUX DISEASE
     Dosage: 1 BID PO ORAL
     Route: 048
     Dates: start: 20081001
  5. LANSOPRAZOLE [Suspect]
     Indication: GASTROOESOPHAGEAL REFLUX DISEASE
     Dosage: 30 1QD PO ORA
     Route: 048
     Dates: start: 20081001
  6. LANSOPRAZOLE [Suspect]
     Indication: BARRETT'S OESOPHAGUS
     Dosage: 30 1QD PO ORA
     Route: 048
     Dates: start: 20081001
  7. ACIPHEX [Suspect]
     Indication: BARRETT'S OESOPHAGUS
     Dates: start: 20030901
  8. ACIPHEX [Suspect]
     Indication: GASTROOESOPHAGEAL REFLUX DISEASE
     Dates: start: 20030901

REACTIONS (7)
  - DRUG INEFFECTIVE [None]
  - NAUSEA [None]
  - DIARRHOEA [None]
  - ABDOMINAL PAIN [None]
  - MUSCLE SPASMS [None]
  - ABDOMINAL DISCOMFORT [None]
  - MIGRAINE [None]
